FAERS Safety Report 4358214-5 (Version None)
Quarter: 2004Q2

REPORT INFORMATION
  Report Type: 
  Country: None (occurrence: None)
  Receive Date: 20040511
  Receipt Date: 20040427
  Transmission Date: 20050107
  Serious: Yes (Other)
  Sender: FDA-Public Use
  Company Number: 2004028413

PATIENT
  Sex: Female
  Weight: 53.5244 kg

DRUGS (4)
  1. NORVASC [Suspect]
     Indication: HYPERTENSION
     Dosage: 5 MG (DAILY), ORAL
     Route: 048
  2. LATANOPROST [Concomitant]
  3. VITAMINS (VITAMINS) [Concomitant]
  4. MINEAL NOS (MINERAL NOS) [Concomitant]

REACTIONS (9)
  - ABDOMINAL PAIN UPPER [None]
  - CATARACT OPERATION [None]
  - CHROMATURIA [None]
  - DRUG INEFFECTIVE [None]
  - FATIGUE [None]
  - MUSCLE CRAMP [None]
  - MUSCULAR WEAKNESS [None]
  - OSTEOPOROSIS [None]
  - PNEUMONIA [None]
